FAERS Safety Report 4492612-4 (Version None)
Quarter: 2004Q4

REPORT INFORMATION
  Report Type: 
  Country: None (occurrence: None)
  Receive Date: 20041029
  Receipt Date: 20041020
  Transmission Date: 20050328
  Serious: Yes (Disabling, Other)
  Sender: FDA-Public Use
  Company Number: 2004-10-0376

PATIENT
  Age: 51 Year
  Sex: Female

DRUGS (1)
  1. INTRON A [Suspect]
     Indication: MALIGNANT MELANOMA
     Dates: start: 20020101

REACTIONS (16)
  - AMNESIA [None]
  - CARCINOMA [None]
  - CRYING [None]
  - EPILEPSY [None]
  - FEELING ABNORMAL [None]
  - INSOMNIA [None]
  - MOTION SICKNESS [None]
  - NERVOUS SYSTEM DISORDER [None]
  - NIGHTMARE [None]
  - SPEECH DISORDER [None]
  - SQUAMOUS CELL CARCINOMA [None]
  - SUICIDAL IDEATION [None]
  - TOOTH EROSION [None]
  - TREMOR [None]
  - VOMITING PROJECTILE [None]
  - WALKING AID USER [None]
